FAERS Safety Report 14373311 (Version 1)
Quarter: 2018Q1

REPORT INFORMATION
  Report Type: Spontaneous
  Country: CN (occurrence: CN)
  Receive Date: 20180110
  Receipt Date: 20180110
  Transmission Date: 20180509
  Serious: Yes (Other)
  Sender: FDA-Public Use
  Company Number: CN-MYLANLABS-2018M1000841

PATIENT
  Age: 73 Year
  Sex: Female

DRUGS (1)
  1. CALCITONIN SALMON. [Suspect]
     Active Substance: CALCITONIN SALMON
     Indication: OSTEOPOROSIS
     Dosage: 1 ML, QD
     Route: 058
     Dates: start: 20171013, end: 20171013

REACTIONS (4)
  - Chills [Recovering/Resolving]
  - Chest discomfort [Recovered/Resolved]
  - Flushing [Recovering/Resolving]
  - Mental fatigue [Recovered/Resolved]

NARRATIVE: CASE EVENT DATE: 20171013
